FAERS Safety Report 5735392-4 (Version None)
Quarter: 2008Q2

REPORT INFORMATION
  Report Type: 
  Country: None (occurrence: None)
  Receive Date: 20080512
  Receipt Date: 20080430
  Transmission Date: 20081010
  Serious: Yes (Hospitalization)
  Sender: FDA-Public Use
  Company Number: US-TEVA-171034USA

PATIENT
  Age: 86 Year
  Sex: Male

DRUGS (1)
  1. CLINDAMYCIN HCL [Suspect]
     Dosage: TWO 150 MG
     Route: 048

REACTIONS (3)
  - BLISTER [None]
  - FOREIGN BODY TRAUMA [None]
  - OESOPHAGEAL OEDEMA [None]
